FAERS Safety Report 7008432-2 (Version None)
Quarter: 2010Q3

REPORT INFORMATION
  Report Type: 
  Country: None (occurrence: None)
  Receive Date: 20100721
  Receipt Date: 20100521
  Transmission Date: 20110219
  Serious: No
  Sender: FDA-Public Use
  Company Number: LMI-2010-00442(0)

PATIENT
  Age: 39 Year
  Sex: Male
  Weight: 87.0906 kg

DRUGS (2)
  1. ABLAVAR [Suspect]
     Indication: HYPERTENSION
     Dosage: 10 ML, INTRAVENOUS BOLUS
     Route: 040
     Dates: start: 20100521, end: 20100521
  2. ABLAVAR [Suspect]
     Indication: NUCLEAR MAGNETIC RESONANCE IMAGING
     Dosage: 10 ML, INTRAVENOUS BOLUS
     Route: 040
     Dates: start: 20100521, end: 20100521

REACTIONS (2)
  - PRURITUS GENITAL [None]
  - RASH MACULAR [None]
